FAERS Safety Report 5326377-0 (Version None)
Quarter: 2007Q2

REPORT INFORMATION
  Report Type: 
  Country: None (occurrence: None)
  Receive Date: 20070516
  Receipt Date: 20070511
  Transmission Date: 20071010
  Serious: Yes (Hospitalization)
  Sender: FDA-Public Use
  Company Number: B0470848A

PATIENT
  Age: 44 Year
  Sex: Female

DRUGS (9)
  1. AUGMENTIN '125' [Suspect]
     Dosage: 2G PER DAY
     Route: 042
     Dates: start: 20070110, end: 20070118
  2. LAROXYL [Concomitant]
  3. TERCIAN [Concomitant]
  4. RISPERDAL [Concomitant]
  5. CACIT D3 [Concomitant]
  6. DAFALGAN [Concomitant]
  7. TOPALGIC (FRANCE) [Concomitant]
  8. VITRIMIX [Concomitant]
     Dates: start: 20070109
  9. FLAGYL [Concomitant]
     Dates: start: 20070208, end: 20070212

REACTIONS (3)
  - BLOOD ALKALINE PHOSPHATASE INCREASED [None]
  - GAMMA-GLUTAMYLTRANSFERASE INCREASED [None]
  - HEPATITIS CHOLESTATIC [None]
